FAERS Safety Report 20185687 (Version 1)
Quarter: 2021Q4

REPORT INFORMATION
  Report Type: Spontaneous
  Country: DE (occurrence: DE)
  Receive Date: 20211215
  Receipt Date: 20211215
  Transmission Date: 20220303
  Serious: Yes (Other)
  Sender: FDA-Public Use
  Company Number: DE-SA-SAC20211213000662

PATIENT
  Age: 65 Year
  Sex: Male
  Weight: 70 kg

DRUGS (1)
  1. DUPIXENT [Suspect]
     Active Substance: DUPILUMAB
     Indication: Dermatitis atopic
     Dosage: UNK
     Route: 065
     Dates: start: 201811, end: 201906

REACTIONS (1)
  - Erythema multiforme [Unknown]
